FAERS Safety Report 9705843 (Version 2)
Quarter: 2013Q4

REPORT INFORMATION
  Report Type: Spontaneous
  Country: US (occurrence: US)
  Receive Date: 20131122
  Receipt Date: 20131122
  Transmission Date: 20140711
  Serious: Yes (Disabling)
  Sender: FDA-Public Use
  Company Number: US-GILEAD-2008-0017590

PATIENT
  Age: 49 Year
  Sex: Female

DRUGS (13)
  1. LETAIRIS [Suspect]
     Indication: PULMONARY ARTERIAL HYPERTENSION
     Route: 048
     Dates: start: 20080723, end: 20080813
  2. LETAIRIS [Suspect]
     Route: 048
     Dates: start: 20080421, end: 20080722
  3. LETAIRIS [Suspect]
     Route: 048
     Dates: start: 20080823, end: 20081105
  4. DIGOXIN [Concomitant]
  5. SYNTHROID [Concomitant]
  6. PREVACID [Concomitant]
  7. ALDACTONE [Concomitant]
  8. REMODULIN [Concomitant]
  9. POTASSIUM [Concomitant]
  10. ZOLOFT [Concomitant]
  11. LIPITOR [Concomitant]
  12. LASIX [Concomitant]
  13. ZYRTEC [Concomitant]

REACTIONS (1)
  - Palpitations [Recovered/Resolved]
